FAERS Safety Report 4544091-6 (Version None)
Quarter: 2005Q1

REPORT INFORMATION
  Report Type: 
  Country: None (occurrence: None)
  Receive Date: 20050103
  Receipt Date: 20030925
  Transmission Date: 20050727
  Serious: Yes (Life-Threatening, Hospitalization, Other)
  Sender: FDA-Public Use
  Company Number: PHFR2003GB03129

PATIENT
  Age: 28 Year
  Sex: Male
  Weight: 90 kg

DRUGS (6)
  1. CLOZARIL [Suspect]
     Indication: SCHIZOPHRENIA
     Dosage: SEE IMAGE, ORAL
     Route: 048
     Dates: start: 20030702, end: 20030806
  2. CLOZARIL [Suspect]
     Indication: SCHIZOPHRENIA
     Dosage: SEE IMAGE, ORAL
     Route: 048
     Dates: start: 19990614, end: 20030807
  3. CLOZARIL [Suspect]
     Indication: SCHIZOPHRENIA
     Dosage: SEE IMAGE, ORAL
     Route: 048
     Dates: start: 20030808
  4. LORAZEPAM (NGX) (LORAZEPAM) [Suspect]
     Indication: AGITATION
     Dosage: SEE IMAGE
     Dates: start: 20030721, end: 20030806
  5. LORAZEPAM (NGX) (LORAZEPAM) [Suspect]
     Indication: AGITATION
     Dosage: SEE IMAGE
     Dates: start: 20030806
  6. AMISULPRIDE (AMISULPRIDE) [Concomitant]

REACTIONS (9)
  - CARDIO-RESPIRATORY ARREST [None]
  - DRUG INTERACTION [None]
  - HYPERTHERMIA MALIGNANT [None]
  - MEDICATION ERROR [None]
  - NEUROLEPTIC MALIGNANT SYNDROME [None]
  - NEUTROPHIL COUNT INCREASED [None]
  - RHABDOMYOLYSIS [None]
  - SUPRAVENTRICULAR TACHYCARDIA [None]
  - THERAPY NON-RESPONDER [None]
